APPROVED DRUG PRODUCT: SEVELAMER CARBONATE
Active Ingredient: SEVELAMER CARBONATE
Strength: 800MG
Dosage Form/Route: TABLET;ORAL
Application: A207179 | Product #001 | TE Code: AB
Applicant: AUROBINDO PHARMA LTD
Approved: Jul 17, 2017 | RLD: No | RS: No | Type: RX